FAERS Safety Report 5588943-7 (Version None)
Quarter: 2008Q1

REPORT INFORMATION
  Report Type: 
  Country: None (occurrence: None)
  Receive Date: 20080111
  Receipt Date: 20080103
  Transmission Date: 20080703
  Serious: Yes (Death, Hospitalization, Other)
  Sender: FDA-Public Use
  Company Number: US-ABBOTT-08P-163-0432355-00

PATIENT
  Sex: Male
  Weight: 3.033 kg

DRUGS (3)
  1. DEPAKOTE ER [Suspect]
     Indication: DRUG EXPOSURE DURING PREGNANCY
     Route: 064
  2. ZONISAMIDE [Suspect]
     Indication: DRUG EXPOSURE DURING PREGNANCY
     Route: 064
  3. SERTRALINE [Suspect]
     Indication: DRUG EXPOSURE DURING PREGNANCY
     Route: 064

REACTIONS (10)
  - ANAEMIA [None]
  - CARNITINE DECREASED [None]
  - CYANOSIS [None]
  - HEART RATE DECREASED [None]
  - METABOLIC ACIDOSIS [None]
  - PALLOR [None]
  - SLUGGISHNESS [None]
  - SMALL FOR DATES BABY [None]
  - THROMBOCYTOPENIA [None]
  - UMBILICAL CORD AROUND NECK [None]
